FAERS Safety Report 14701024 (Version 1)
Quarter: 2018Q1

REPORT INFORMATION
  Report Type: Spontaneous
  Country: US (occurrence: US)
  Receive Date: 20180328
  Receipt Date: 20180328
  Transmission Date: 20180509
  Serious: Yes (Hospitalization)
  Sender: FDA-Public Use
  Company Number: None

PATIENT
  Age: 27 Year
  Sex: Female
  Weight: 83.92 kg

DRUGS (2)
  1. LATUDA [Suspect]
     Active Substance: LURASIDONE HYDROCHLORIDE
     Dosage: (28 WEEKS GESTATION-DELIVERY) -ANXIETY/DEPRESSION
  2. ZOLOFT [Suspect]
     Active Substance: SERTRALINE HYDROCHLORIDE
     Dosage: (16 WEEKS GESTATION-DELIVERY)-ANXIETY/DEPRESSION

REACTIONS (4)
  - Protein deficiency [None]
  - Iron deficiency [None]
  - False labour [None]
  - Exposure during pregnancy [None]

NARRATIVE: CASE EVENT DATE: 20170220
